FAERS Safety Report 23786997 (Version 1)
Quarter: 2024Q2

REPORT INFORMATION
  Report Type: Report from Study
  Country: US (occurrence: US)
  Receive Date: 20240426
  Receipt Date: 20240426
  Transmission Date: 20240716
  Serious: Yes (Death, Other)
  Sender: FDA-Public Use
  Company Number: US-JNJFOC-20240446209

PATIENT

DRUGS (7)
  1. BALVERSA [Suspect]
     Active Substance: ERDAFITINIB
     Indication: Breast cancer
     Dosage: THE STARTING DOSE OF ERDAFITINIB WAS 8 MG ORAL ONCE DAILY THROUGHOUT THE FIRST 14 DAYS OF A 28-DAY C
     Route: 048
  2. BALVERSA [Suspect]
     Active Substance: ERDAFITINIB
     Indication: Gastrointestinal adenocarcinoma
     Dosage: ON DAY 15 OF CYCLE 1, ERDAFITINIB COULD BE INCREASED TO 9 MG ORAL ONCE DAILY CONTINUOUSLY
     Route: 048
  3. BALVERSA [Suspect]
     Active Substance: ERDAFITINIB
     Indication: Brain neoplasm
  4. BALVERSA [Suspect]
     Active Substance: ERDAFITINIB
     Indication: Genital neoplasm malignant female
  5. BALVERSA [Suspect]
     Active Substance: ERDAFITINIB
     Indication: Head and neck cancer
  6. BALVERSA [Suspect]
     Active Substance: ERDAFITINIB
     Indication: Sarcoma
  7. BALVERSA [Suspect]
     Active Substance: ERDAFITINIB
     Indication: Adenocarcinoma

REACTIONS (48)
  - Hepatic failure [Fatal]
  - Embolism [Unknown]
  - Hypoxia [Unknown]
  - Ascites [Unknown]
  - Atrioventricular block complete [Unknown]
  - Blood bilirubin increased [Unknown]
  - Abdominal pain [Unknown]
  - Gastrointestinal disorder [Unknown]
  - Lymphocyte count decreased [Unknown]
  - Atrioventricular block second degree [Unknown]
  - Lip pain [Unknown]
  - Oral pain [Unknown]
  - Hypophosphataemia [Unknown]
  - Hypoalbuminaemia [Unknown]
  - Hypotension [Unknown]
  - Anaemia [Unknown]
  - Vomiting [Unknown]
  - Blood alkaline phosphatase increased [Unknown]
  - Nausea [Unknown]
  - Paronychia [Unknown]
  - Hyponatraemia [Unknown]
  - Stomatitis [Unknown]
  - Palmar-plantar erythrodysaesthesia syndrome [Unknown]
  - Fatigue [Unknown]
  - Aspartate aminotransferase increased [Unknown]
  - Hypertension [Unknown]
  - Metabolic disorder [Unknown]
  - Respiratory disorder [Unknown]
  - Platelet count decreased [Unknown]
  - Alanine aminotransferase increased [Unknown]
  - Hyperphosphataemia [Unknown]
  - Dry mouth [Unknown]
  - Decreased appetite [Unknown]
  - Dysgeusia [Unknown]
  - Diarrhoea [Unknown]
  - Dry skin [Unknown]
  - Eye disorder [Unknown]
  - Weight decreased [Unknown]
  - Vision blurred [Unknown]
  - Nail discolouration [Unknown]
  - Alopecia [Unknown]
  - Dry eye [Unknown]
  - Onychomadesis [Unknown]
  - Constipation [Unknown]
  - Skin disorder [Unknown]
  - Arthralgia [Unknown]
  - White blood cell count decreased [Unknown]
  - Off label use [Unknown]
